FAERS Safety Report 7921357 (Version 3)
Quarter: 2013Q1

REPORT INFORMATION
  Report Type: Spontaneous
  Country: US (occurrence: US)
  Receive Date: 20110429
  Receipt Date: 20130213
  Transmission Date: 20140127
  Serious: Yes (Other)
  Sender: FDA-Public Use
  Company Number: US-ASTRAZENECA-2010SE41771

PATIENT
  Age: 48 Year
  Sex: Male

DRUGS (4)
  1. NEXIUM [Suspect]
     Route: 048
  2. PRILOSEC [Suspect]
     Route: 048
  3. PREVACID [Concomitant]
  4. ZANTAC [Concomitant]

REACTIONS (7)
  - Accident [Unknown]
  - Upper limb fracture [Unknown]
  - Gastric cancer [Unknown]
  - Tooth disorder [Unknown]
  - Aspiration [Unknown]
  - Drug ineffective [Unknown]
  - Drug dose omission [Unknown]
